FAERS Safety Report 5332337-6 (Version None)
Quarter: 2007Q2

REPORT INFORMATION
  Report Type: 
  Country: None (occurrence: None)
  Receive Date: 20070523
  Receipt Date: 20070521
  Transmission Date: 20071010
  Serious: Yes (Hospitalization)
  Sender: FDA-Public Use
  Company Number: A0648860A

PATIENT
  Age: 73 Year
  Sex: Female

DRUGS (11)
  1. TYKERB [Suspect]
     Indication: BREAST CANCER
     Dosage: 250MG SIX TIMES PER DAY
     Route: 048
     Dates: start: 20070423
  2. XELODA [Suspect]
  3. XELODA [Concomitant]
  4. NIASPAN [Concomitant]
  5. LOVASTATIN [Concomitant]
  6. ASPIRIN [Concomitant]
  7. METOCLOPRAMIDE [Concomitant]
  8. CARAFATE [Concomitant]
  9. PROTONIX [Concomitant]
  10. VITAMIN E [Concomitant]
  11. BILBERRY [Concomitant]

REACTIONS (6)
  - DEHYDRATION [None]
  - DIARRHOEA [None]
  - DRY SKIN [None]
  - PARAESTHESIA [None]
  - PYREXIA [None]
  - VOMITING [None]
